FAERS Safety Report 6187601-8 (Version None)
Quarter: 2009Q2

REPORT INFORMATION
  Report Type: 
  Country: None (occurrence: None)
  Receive Date: 20090511
  Receipt Date: 20090501
  Transmission Date: 20091009
  Serious: No
  Sender: FDA-Public Use
  Company Number: 2009004645

PATIENT
  Sex: Male

DRUGS (4)
  1. FENTORA [Suspect]
     Indication: BACK PAIN
     Dosage: (800 MCG), BU
     Route: 002
  2. ACTIQ [Suspect]
     Indication: BACK PAIN
     Dosage: (1600 MCG), BU
     Route: 002
     Dates: end: 20090201
  3. OXYCONTIN [Concomitant]
  4. DILAUDID [Concomitant]

REACTIONS (1)
  - DRUG PRESCRIBING ERROR [None]
